FAERS Safety Report 4840149-2 (Version None)
Quarter: 2005Q4

REPORT INFORMATION
  Report Type: 
  Country: None (occurrence: None)
  Receive Date: 20051125
  Receipt Date: 20051116
  Transmission Date: 20060501
  Serious: Yes (Other)
  Sender: FDA-Public Use
  Company Number: 2005156338

PATIENT
  Age: 67 Year
  Sex: Male
  Weight: 83.9154 kg

DRUGS (4)
  1. DRAMAMINE [Suspect]
     Indication: MOTION SICKNESS
     Dosage: 2 TABLETS ONCE, ORAL
     Route: 048
     Dates: start: 20051115, end: 20051115
  2. VITAMINS (VITAMINS) [Concomitant]
  3. FOLIC ACID [Concomitant]
  4. LOSARTAN POTASSIUM [Concomitant]

REACTIONS (3)
  - HYPOREFLEXIA [None]
  - LOSS OF CONSCIOUSNESS [None]
  - SOMNOLENCE [None]
